FAERS Safety Report 6917078-3 (Version None)
Quarter: 2010Q3

REPORT INFORMATION
  Report Type: 
  Country: None (occurrence: None)
  Receive Date: 20100810
  Receipt Date: 20100803
  Transmission Date: 20110219
  Serious: Yes (Hospitalization)
  Sender: FDA-Public Use
  Company Number: A0874679A

PATIENT
  Age: 35 Year
  Sex: Male

DRUGS (2)
  1. AVANDIA [Suspect]
     Dosage: 4MG UNKNOWN
     Route: 048
     Dates: start: 20030101, end: 20070101
  2. AVANDAMET [Suspect]
     Route: 048
     Dates: start: 20050101, end: 20060101

REACTIONS (2)
  - ANKLE FRACTURE [None]
  - FIBULA FRACTURE [None]
